FAERS Safety Report 10888440 (Version 1)
Quarter: 2015Q1

REPORT INFORMATION
  Report Type: Spontaneous
  Country: US (occurrence: US)
  Receive Date: 20150305
  Receipt Date: 20150305
  Transmission Date: 20150721
  Serious: Yes (Life-Threatening, Hospitalization)
  Sender: FDA-Public Use
  Company Number: US-SA-2015SA025736

PATIENT
  Age: 61 Year
  Sex: Male

DRUGS (6)
  1. OXALIPLATIN. [Suspect]
     Active Substance: OXALIPLATIN
     Indication: COLON CANCER METASTATIC
     Dosage: INFUSION; 40% OF THE OXALIPLATIN INFUSION (APPROXIMATELY 60 MG)
     Route: 065
  2. FLUOROURACIL. [Concomitant]
     Active Substance: FLUOROURACIL
     Indication: COLON CANCER METASTATIC
     Dosage: INFUSION
  3. OXALIPLATIN. [Suspect]
     Active Substance: OXALIPLATIN
     Indication: COLON CANCER METASTATIC
     Dosage: INFUSION
     Route: 065
  4. FLUOROURACIL. [Concomitant]
     Active Substance: FLUOROURACIL
     Indication: COLON CANCER METASTATIC
     Dosage: BOLUS
     Route: 040
  5. BEVACIZUMAB [Concomitant]
     Active Substance: BEVACIZUMAB
     Indication: COLON CANCER METASTATIC
  6. LEUCOVORIN CALCIUM. [Concomitant]
     Active Substance: LEUCOVORIN CALCIUM
     Indication: COLON CANCER METASTATIC

REACTIONS (18)
  - Haematuria [Unknown]
  - Fibrin D dimer increased [Unknown]
  - Blood bilirubin unconjugated increased [Unknown]
  - Prothrombin time prolonged [Unknown]
  - Platelet count decreased [Unknown]
  - Blood bilirubin increased [Unknown]
  - Haemoglobinuria [Unknown]
  - Pyrexia [Unknown]
  - Blood lactate dehydrogenase increased [Unknown]
  - Disseminated intravascular coagulation [Unknown]
  - Prothrombin time ratio increased [Unknown]
  - Activated partial thromboplastin time prolonged [Unknown]
  - Haptoglobin decreased [Unknown]
  - Haemolytic anaemia [Unknown]
  - Blood fibrinogen decreased [Unknown]
  - Gingival bleeding [Unknown]
  - Haemoglobin decreased [Unknown]
  - Chills [Unknown]
